FAERS Safety Report 9374723 (Version 1)
Quarter: 2013Q2

REPORT INFORMATION
  Report Type: Spontaneous
  Country: US (occurrence: US)
  Receive Date: 20130628
  Receipt Date: 20130628
  Transmission Date: 20140414
  Serious: No
  Sender: FDA-Public Use
  Company Number: US-BAYER-2013-078070

PATIENT
  Age: 22 Year
  Sex: Female

DRUGS (1)
  1. MIRENA [Suspect]
     Dosage: 20 MCG/24HR, CONT
     Route: 015
     Dates: start: 20130516, end: 20130516

REACTIONS (6)
  - Dizziness [None]
  - Presyncope [None]
  - Nausea [None]
  - Hyperhidrosis [None]
  - Peripheral coldness [None]
  - Abdominal pain lower [None]
